FAERS Safety Report 5942796-3 (Version None)
Quarter: 2008Q4

REPORT INFORMATION
  Report Type: 
  Country: None (occurrence: None)
  Receive Date: 20081106
  Receipt Date: 20081030
  Transmission Date: 20090506
  Serious: Yes (Hospitalization)
  Sender: FDA-Public Use
  Company Number: US-JNJFOC-20080801481

PATIENT
  Sex: Male
  Weight: 107.05 kg

DRUGS (4)
  1. RISPERDAL [Suspect]
     Indication: SCHIZOPHRENIA
     Dosage: 6 MG TO 8 MG
     Route: 048
  2. DEPAKOTE [Suspect]
     Indication: SCHIZOAFFECTIVE DISORDER
     Route: 048
  3. RADIATION THERAPY [Suspect]
     Indication: THYROID CANCER
     Route: 065
  4. SYNTHIOD [Concomitant]

REACTIONS (3)
  - SCHIZOAFFECTIVE DISORDER [None]
  - THYROID CANCER [None]
  - WHITE BLOOD CELL COUNT DECREASED [None]
